FAERS Safety Report 13171049 (Version 4)
Quarter: 2018Q1

REPORT INFORMATION
  Report Type: Spontaneous
  Country: JP (occurrence: JP)
  Receive Date: 20170201
  Receipt Date: 20180205
  Transmission Date: 20180508
  Serious: Yes (Other)
  Sender: FDA-Public Use
  Company Number: JP-SUN PHARMACEUTICAL INDUSTRIES LTD-2017RR-132350

PATIENT
  Age: 18 Year
  Sex: Female

DRUGS (6)
  1. INSULIN [Concomitant]
     Active Substance: INSULIN NOS
     Indication: TYPE 2 DIABETES MELLITUS
     Dosage: UNK
     Route: 042
  2. BORTEZOMIB [Suspect]
     Active Substance: BORTEZOMIB
     Indication: ACUTE LYMPHOCYTIC LEUKAEMIA
     Dosage: 1.3 MG/M2, DAILY
     Route: 065
     Dates: start: 20120919
  3. L-ASPARGINASE [Suspect]
     Active Substance: ASPARAGINASE
     Indication: ACUTE LYMPHOCYTIC LEUKAEMIA
     Dosage: 6000 U/M2 DAIL.Y
     Route: 065
     Dates: start: 20120919
  4. PREDNISOLONE. [Suspect]
     Active Substance: PREDNISOLONE
     Indication: ACUTE LYMPHOCYTIC LEUKAEMIA RECURRENT
     Dosage: 30 MG/M2, DAILY
     Route: 065
     Dates: start: 20120919
  5. FUROSEMIDE. [Suspect]
     Active Substance: FUROSEMIDE
     Indication: DIURETIC THERAPY
     Dosage: UNK
     Route: 065
  6. VINCRISTINE [Suspect]
     Active Substance: VINCRISTINE
     Indication: ACUTE LYMPHOCYTIC LEUKAEMIA
     Dosage: 1.5 MG/M2, DAILY
     Route: 065
     Dates: start: 20120919

REACTIONS (3)
  - Gastrointestinal necrosis [Unknown]
  - Neutropenia [Unknown]
  - Intestinal ischaemia [Unknown]
